FAERS Safety Report 8743035 (Version 2)
Quarter: 2012Q4

REPORT INFORMATION
  Report Type: Report from Study
  Country: JP (occurrence: JP)
  Receive Date: 20120824
  Receipt Date: 20121017
  Transmission Date: 20130627
  Serious: Yes (Death)
  Sender: FDA-Public Use
  Company Number: JP-009507513-2012SP026356

PATIENT
  Age: 72 Year
  Sex: Female
  Weight: 52 kg

DRUGS (15)
  1. AROGLYCEM [Suspect]
     Indication: HYPOGLYCAEMIA
     Dosage: 50 mg, TID
     Route: 048
     Dates: start: 20100312, end: 20100315
  2. AROGLYCEM [Suspect]
     Dosage: 75 mg in the morning and in the evening, 50 mg in the daytime
     Route: 048
     Dates: start: 20100316, end: 20100318
  3. AROGLYCEM [Suspect]
     Dosage: 100 mg in the morning and at daytime, 50 mg in the daytime
     Route: 048
     Dates: start: 20100319, end: 20100323
  4. AROGLYCEM [Suspect]
     Dosage: 50 mg in the morning and in the daytime, 150 mg at night
     Route: 048
     Dates: start: 20100324, end: 20100325
  5. AROGLYCEM [Suspect]
     Dosage: 50 mg in the morning and in the daytime, 100 mg at night
     Route: 048
     Dates: start: 20100326, end: 20100326
  6. AROGLYCEM [Suspect]
     Dosage: 50 mg,tid
     Route: 048
     Dates: start: 20100327, end: 20100330
  7. AROGLYCEM [Suspect]
     Dosage: 50 mg,bid
     Route: 048
     Dates: start: 20100331, end: 20100401
  8. AROGLYCEM [Suspect]
     Dosage: UNK
  9. SANDOSTATIN [Concomitant]
     Indication: INSULINOMA
     Dosage: 100 mg, UNK
     Route: 058
     Dates: start: 20100330, end: 20100425
  10. SANDOSTATIN [Concomitant]
     Dosage: UNK
     Route: 030
     Dates: start: 20120412, end: 20120412
  11. SANDOSTATIN [Concomitant]
     Dosage: UNK
     Route: 030
     Dates: start: 20120510, end: 20120510
  12. SANDOSTATIN [Concomitant]
     Dosage: 40 UNK, UNK
     Route: 030
     Dates: start: 20120614, end: 20120614
  13. PREDNISOLONE [Concomitant]
     Indication: PRODUCT USED FOR UNKNOWN INDICATION
     Dosage: 15 mg, UNK
     Route: 048
     Dates: start: 20100414, end: 20100502
  14. DECADRON (DEXAMETHASONE) [Concomitant]
     Indication: PRODUCT USED FOR UNKNOWN INDICATION
     Dosage: 3.3 mg, UNK
     Route: 042
     Dates: start: 20100503, end: 20100702
  15. LASIX (FUROSEMIDE) [Concomitant]
     Indication: PRODUCT USED FOR UNKNOWN INDICATION
     Dosage: 40 mg, UNK
     Route: 048
     Dates: start: 20100323, end: 20100702

REACTIONS (3)
  - Disease progression [Fatal]
  - Oedema [Not Recovered/Not Resolved]
  - Insulinoma [None]
